FAERS Safety Report 7243434-2 (Version None)
Quarter: 2011Q1

REPORT INFORMATION
  Report Type: 
  Country: None (occurrence: None)
  Receive Date: 20110125
  Receipt Date: 20110118
  Transmission Date: 20110831
  Serious: Yes (Hospitalization)
  Sender: FDA-Public Use
  Company Number: US-US-EMD SERONO, INC.-7028462

PATIENT
  Sex: Female
  Weight: 113 kg

DRUGS (6)
  1. REBIF [Suspect]
     Route: 058
     Dates: start: 20101124
  2. BACLOFEN [Concomitant]
     Route: 048
     Dates: start: 20080826
  3. NEURONTIN [Concomitant]
     Indication: NEUROPATHY PERIPHERAL
     Route: 048
     Dates: start: 20081118
  4. DITROPAN [Concomitant]
     Indication: NEUROGENIC BLADDER
     Route: 048
     Dates: start: 20090730
  5. REBIF [Suspect]
     Indication: MULTIPLE SCLEROSIS
     Route: 058
     Dates: start: 20100914, end: 20101124
  6. ULTRAM [Concomitant]
     Indication: PAIN
     Route: 048
     Dates: start: 20100721

REACTIONS (3)
  - CHOLECYSTITIS [None]
  - CHOLELITHIASIS [None]
  - ABASIA [None]
